FAERS Safety Report 5237157-9 (Version None)
Quarter: 2007Q1

REPORT INFORMATION
  Report Type: 
  Country: None (occurrence: None)
  Receive Date: 20070213
  Receipt Date: 20070206
  Transmission Date: 20070707
  Serious: Yes (Hospitalization, Disabling)
  Sender: FDA-Public Use
  Company Number: 2007005057

PATIENT
  Age: 73 Year
  Sex: Female

DRUGS (7)
  1. ONDANSETRON HCL [Suspect]
     Route: 048
     Dates: start: 20070113, end: 20070114
  2. FENTANYL [Suspect]
     Indication: METASTATIC RENAL CELL CARCINOMA
     Route: 062
     Dates: start: 20060703
  3. SUNITINIB MALATE [Suspect]
     Indication: METASTATIC RENAL CELL CARCINOMA
     Dosage: 50MG PER DAY
     Route: 048
     Dates: start: 20060802, end: 20061227
  4. METOCLOPRAMIDE HYDROCHLORIDE [Concomitant]
     Route: 048
     Dates: start: 20061228, end: 20070112
  5. CODEINE [Concomitant]
     Dates: start: 20061130
  6. OMEPRAZOLE [Concomitant]
     Route: 048
     Dates: start: 20070112
  7. GLYCERIN [Concomitant]
     Dates: start: 20070113, end: 20070114

REACTIONS (5)
  - ABDOMINAL DISTENSION [None]
  - ABDOMINAL PAIN [None]
  - CONSTIPATION [None]
  - FLUID INTAKE RESTRICTION [None]
  - VOMITING [None]
